FAERS Safety Report 4523057-6 (Version None)
Quarter: 2004Q4

REPORT INFORMATION
  Report Type: 
  Country: None (occurrence: None)
  Receive Date: 20041207
  Receipt Date: 20041207
  Transmission Date: 20050328
  Serious: Yes (Other)
  Sender: FDA-Public Use
  Company Number: None

PATIENT
  Age: 30 Year
  Sex: Female
  Weight: 70.3075 kg

DRUGS (2)
  1. LOESTRIN/MICROGESTIN  UNKNOWN       UNKNOWN [Suspect]
     Dosage: 21    28     ORAL
     Route: 048
  2. ALESSE [Suspect]
     Dosage: 21    28    ORAL
     Route: 048

REACTIONS (3)
  - DYSPAREUNIA [None]
  - LIBIDO DECREASED [None]
  - MEDICATION ERROR [None]
